FAERS Safety Report 14435198 (Version 6)
Quarter: 2018Q3

REPORT INFORMATION
  Report Type: Report from Study
  Country: DE (occurrence: DE)
  Receive Date: 20180125
  Receipt Date: 20180716
  Transmission Date: 20181010
  Serious: Yes (Hospitalization, Other)
  Sender: FDA-Public Use
  Company Number: DE-BAXTER-2018BAX002555

PATIENT
  Age: 55 Year
  Sex: Male
  Weight: 69 kg

DRUGS (90)
  1. ENDOXAN 1G [Suspect]
     Active Substance: CYCLOPHOSPHAMIDE
     Dosage: 1400 MG, UNK (INFUSION RATE 2.08 ML/MIN FROM 07:35 TO 11:35)
     Route: 041
     Dates: start: 20171219, end: 20171219
  2. VINCRISTINE [Suspect]
     Active Substance: VINCRISTINE
     Dosage: 2 MG, UNK (INFUSION RATE 2 ML/MIN FROM 07:30 TO 07:35)
     Route: 041
     Dates: start: 20180220, end: 20180220
  3. DOXORUBICIN [Suspect]
     Active Substance: DOXORUBICIN
     Indication: DIFFUSE LARGE B-CELL LYMPHOMA
     Dosage: 93 MG, UNK (INFUSION RATE 8.33 ML/MIN FROM 11:35 TO 12:05)
     Route: 041
     Dates: start: 20171219, end: 20171219
  4. DOXORUBICIN [Suspect]
     Active Substance: DOXORUBICIN
     Dosage: 92 MG, UNK (INFUSION RATE 8.33 ML/MIN FROM 11:35 TO 12:05)
     Route: 041
     Dates: start: 20180130, end: 20180130
  5. PREDNISOLUT [Concomitant]
     Active Substance: PREDNISOLONE
     Dosage: 100 MG, UNK
     Route: 048
     Dates: start: 20171103, end: 20171106
  6. PREDNISOLUT [Concomitant]
     Active Substance: PREDNISOLONE
     Dosage: 100 MG, UNK
     Route: 042
     Dates: start: 20180108, end: 20180108
  7. KEVATRIL [Concomitant]
     Active Substance: GRANISETRON HYDROCHLORIDE
     Dosage: 2 MG, UNK
     Route: 042
     Dates: start: 20171219, end: 20171219
  8. AMPHO?MORONAL [Concomitant]
     Active Substance: AMPHOTERICIN B
     Indication: PROPHYLAXIS
     Dosage: UNK UNK, BID (2)
     Route: 048
     Dates: start: 20171127, end: 20171203
  9. TAVEGIL [Concomitant]
     Active Substance: CLEMASTINE FUMARATE
     Dosage: UNK ()
     Route: 042
     Dates: start: 20180129, end: 20180129
  10. PARACETAMOL [Concomitant]
     Active Substance: ACETAMINOPHEN
     Dosage: 1 G, UNK
     Route: 048
     Dates: start: 20171127, end: 20171127
  11. RANITIDIN [Concomitant]
     Active Substance: RANITIDINE HYDROCHLORIDE
     Dosage: UNK ()
     Route: 042
     Dates: start: 20180108, end: 20180108
  12. RANITIDIN [Concomitant]
     Active Substance: RANITIDINE HYDROCHLORIDE
     Dosage: UNK ()
     Route: 042
     Dates: start: 20180219, end: 20180219
  13. NEULASTA [Concomitant]
     Active Substance: PEGFILGRASTIM
     Dosage: 6 MG, UNK
     Route: 058
     Dates: start: 20180111, end: 20180111
  14. ENDOXAN 1G [Suspect]
     Active Substance: CYCLOPHOSPHAMIDE
     Dosage: 400 MG, UNK (INFUSION RATE 2.08 ML/MIN FROM 07:35 TO 11:35)
     Route: 041
     Dates: start: 20180130, end: 20180130
  15. ENDOXAN 1G [Suspect]
     Active Substance: CYCLOPHOSPHAMIDE
     Dosage: 400 MG, UNK (INFUSION RATE 2.08 ML/MIN FROM 07:35 TO 11:35)
     Route: 041
     Dates: start: 20180220, end: 20180220
  16. VINCRISTINE [Suspect]
     Active Substance: VINCRISTINE
     Dosage: 2 MG, UNK (INFUSION RATE 2 ML/MIN FROM 07:30 TO 07:35)
     Route: 041
     Dates: start: 20171219, end: 20171219
  17. VINCRISTINE [Suspect]
     Active Substance: VINCRISTINE
     Dosage: 2 MG, UNK (INFUSION RATE 2 ML/MIN FROM 07:30 TO 07:35)
     Route: 041
     Dates: start: 20180109, end: 20180109
  18. DOXORUBICIN [Suspect]
     Active Substance: DOXORUBICIN
     Dosage: 93 MG, UNK (INFUSION RATE 8.33 ML/MIN FROM 11:35 TO 12:05)
     Route: 041
     Dates: start: 20171128, end: 20171128
  19. DOXORUBICIN [Suspect]
     Active Substance: DOXORUBICIN
     Dosage: 3 MG, UNK (INFUSION RATE 8.33 ML/MIN FROM 11:35 TO 12:05)
     Route: 041
     Dates: start: 20180109, end: 20180109
  20. PREDNISONE. [Suspect]
     Active Substance: PREDNISONE
     Indication: DIFFUSE LARGE B-CELL LYMPHOMA
     Dosage: 400 MG, UNK
     Route: 048
     Dates: start: 20171219, end: 20171222
  21. PREDNISONE. [Suspect]
     Active Substance: PREDNISONE
     Dosage: 400 MG, UNK
     Route: 048
     Dates: start: 20171128, end: 20171201
  22. PREDNISONE. [Suspect]
     Active Substance: PREDNISONE
     Dosage: 400 MG, UNK
     Route: 048
     Dates: start: 20180130, end: 20180202
  23. PREDNISONE. [Suspect]
     Active Substance: PREDNISONE
     Dosage: 400 MG, UNK
     Route: 048
     Dates: start: 20180220, end: 20180223
  24. PREDNISOLUT [Concomitant]
     Active Substance: PREDNISOLONE
     Indication: PROPHYLAXIS
     Dosage: 100 MG, UNK
     Route: 042
     Dates: start: 20171102, end: 20171102
  25. KEVATRIL [Concomitant]
     Active Substance: GRANISETRON HYDROCHLORIDE
     Dosage: 2 MG, UNK
     Route: 042
     Dates: start: 20180109, end: 20180109
  26. KEVATRIL [Concomitant]
     Active Substance: GRANISETRON HYDROCHLORIDE
     Dosage: 2 MG, UNK
     Route: 042
     Dates: start: 20180130, end: 20180130
  27. PARACETAMOL [Concomitant]
     Active Substance: ACETAMINOPHEN
     Dosage: 1 G, UNK
     Route: 048
     Dates: start: 20171218, end: 20171218
  28. PARACETAMOL [Concomitant]
     Active Substance: ACETAMINOPHEN
     Dosage: 1 G, UNK
     Route: 048
     Dates: start: 20180108, end: 20180108
  29. RANITIDIN [Concomitant]
     Active Substance: RANITIDINE HYDROCHLORIDE
     Dosage: UNK ()
     Route: 042
     Dates: start: 20171109, end: 20171109
  30. NEULASTA [Concomitant]
     Active Substance: PEGFILGRASTIM
     Indication: PROPHYLAXIS
     Dosage: 6 MG, UNK
     Route: 058
     Dates: start: 20171221, end: 20171221
  31. NEULASTA [Concomitant]
     Active Substance: PEGFILGRASTIM
     Dosage: 6 MG, UNK
     Route: 058
     Dates: start: 20171130, end: 20171130
  32. NEULASTA [Concomitant]
     Active Substance: PEGFILGRASTIM
     Dosage: 6 MG, UNK
     Route: 058
     Dates: start: 20171115, end: 20171115
  33. DOXORUBICIN [Suspect]
     Active Substance: DOXORUBICIN
     Dosage: 93 MG, UNK (INFUSION RATE 8.33 ML/MIN FROM 11:35 TO 12:05)
     Route: 041
     Dates: start: 20180220, end: 20180220
  34. MESNA. [Concomitant]
     Active Substance: MESNA
     Dosage: 2800 MG, UNK
     Route: 042
     Dates: start: 20180130, end: 20180130
  35. KEVATRIL [Concomitant]
     Active Substance: GRANISETRON HYDROCHLORIDE
     Indication: PROPHYLAXIS
     Dosage: 1 MG, UNK
     Route: 042
     Dates: start: 20171102, end: 20171102
  36. KEVATRIL [Concomitant]
     Active Substance: GRANISETRON HYDROCHLORIDE
     Dosage: 2 MG, UNK
     Route: 042
     Dates: start: 20180221, end: 20180221
  37. AMPHO?MORONAL [Concomitant]
     Active Substance: AMPHOTERICIN B
     Dosage: UNK UNK, BID (2X1) (2)
     Route: 048
     Dates: start: 20180219, end: 20180226
  38. TAVEGIL [Concomitant]
     Active Substance: CLEMASTINE FUMARATE
     Dosage: UNK ()
     Route: 042
     Dates: start: 20171218, end: 20171218
  39. PARACETAMOL [Concomitant]
     Active Substance: ACETAMINOPHEN
     Dosage: 1 G, UNK
     Route: 048
     Dates: start: 20180219, end: 20180219
  40. NEULASTA [Concomitant]
     Active Substance: PEGFILGRASTIM
     Dosage: 6 MG, UNK
     Route: 058
     Dates: start: 20180201, end: 20180201
  41. ENDOXAN 1G [Suspect]
     Active Substance: CYCLOPHOSPHAMIDE
     Dosage: 1400 MG, UNK (INFUSION RATE 2.08 ML/MIN FROM 07:35 TO 11:35)
     Route: 041
     Dates: start: 20171128, end: 20171128
  42. RIXIMYO [Suspect]
     Active Substance: RITUXIMAB
     Dosage: 700 MG, UNK (INFUSION RATE 1.7 ML/MIN FROM 07:30 TO 12:30)
     Route: 042
     Dates: start: 20171109, end: 20171109
  43. RIXIMYO [Suspect]
     Active Substance: RITUXIMAB
     Dosage: 700 MG, UNK (INFUSION RATE 2.08 ML/MIN FROM 07:30 TO 11:30)
     Route: 042
     Dates: start: 20180108, end: 20180108
  44. RIXIMYO [Suspect]
     Active Substance: RITUXIMAB
     Dosage: 700 MG, UNK (INFUSION RATE 2.08 ML/MIN FROM 07:30 TO 11:30)
     Route: 041
     Dates: start: 20180219, end: 20180219
  45. PREDNISOLUT [Concomitant]
     Active Substance: PREDNISOLONE
     Dosage: 100 MG, UNK
     Route: 042
     Dates: start: 20180129, end: 20180129
  46. MESNA. [Concomitant]
     Active Substance: MESNA
     Dosage: 2800 MG, UNK
     Route: 042
     Dates: start: 20180109, end: 20180109
  47. AMPHO?MORONAL [Concomitant]
     Active Substance: AMPHOTERICIN B
     Dosage: UNK ()
     Route: 048
     Dates: start: 20171112, end: 20171118
  48. TAVEGIL [Concomitant]
     Active Substance: CLEMASTINE FUMARATE
     Dosage: UNK ()
     Route: 042
     Dates: start: 20180108, end: 20180108
  49. PARACETAMOL [Concomitant]
     Active Substance: ACETAMINOPHEN
     Dosage: 1 G, UNK
     Route: 048
     Dates: start: 20180129, end: 20180129
  50. RANITIDIN [Concomitant]
     Active Substance: RANITIDINE HYDROCHLORIDE
     Indication: PROPHYLAXIS
     Dosage: UNK ()
     Route: 042
     Dates: start: 20171218, end: 20171218
  51. PANTOPRAZOLE SODIUM. [Concomitant]
     Active Substance: PANTOPRAZOLE SODIUM
     Indication: PROPHYLAXIS
     Dosage: 40 MG, UNK
     Route: 048
     Dates: start: 20171112
  52. UROMITEXAN [Concomitant]
     Active Substance: MESNA
     Dosage: 400 MG, UNK
     Route: 048
     Dates: start: 20180109, end: 20180109
  53. ENDOXAN 1G [Suspect]
     Active Substance: CYCLOPHOSPHAMIDE
     Dosage: 400 MG, UNK (INFUSION RATE 2.08 ML/MIN FROM 07:35 TO 11:35)
     Route: 041
     Dates: start: 20180109, end: 20180109
  54. RIXIMYO [Suspect]
     Active Substance: RITUXIMAB
     Indication: DIFFUSE LARGE B-CELL LYMPHOMA
     Dosage: 700 MG, UNK (INFUSION RATE 2.08 ML/MIN FROM 07:30 TO 11:30)
     Route: 042
     Dates: start: 20171218, end: 20171218
  55. PREDNISONE. [Suspect]
     Active Substance: PREDNISONE
     Dosage: 400 MG, UNK
     Route: 048
     Dates: start: 20180109, end: 20180112
  56. MESNA. [Concomitant]
     Active Substance: MESNA
     Indication: PROPHYLAXIS
     Dosage: 2800 MG, UNK
     Route: 042
     Dates: start: 20171219, end: 20171219
  57. MESNA. [Concomitant]
     Active Substance: MESNA
     Dosage: 2800 MG, UNK
     Route: 042
     Dates: start: 20180220, end: 20180220
  58. KEVATRIL [Concomitant]
     Active Substance: GRANISETRON HYDROCHLORIDE
     Dosage: 1 MG, UNK
     Route: 042
     Dates: start: 20171114, end: 20171114
  59. KEVATRIL [Concomitant]
     Active Substance: GRANISETRON HYDROCHLORIDE
     Dosage: 2 MG, UNK
     Route: 042
     Dates: start: 20171129, end: 20171129
  60. TAVEGIL [Concomitant]
     Active Substance: CLEMASTINE FUMARATE
     Dosage: UNK ()
     Route: 042
     Dates: start: 20171109, end: 20171109
  61. RANITIDIN [Concomitant]
     Active Substance: RANITIDINE HYDROCHLORIDE
     Dosage: UNK ()
     Route: 042
     Dates: start: 20180129, end: 20180129
  62. UROMITEXAN [Concomitant]
     Active Substance: MESNA
     Indication: PROPHYLAXIS
     Dosage: 400 MG, UNK
     Route: 048
     Dates: start: 20171113, end: 20171113
  63. ENDOXAN 1G [Suspect]
     Active Substance: CYCLOPHOSPHAMIDE
     Indication: DIFFUSE LARGE B-CELL LYMPHOMA
     Dosage: 1400 MG, UNK (INFUSION RATE 2.1ML/MIN FROM 08:00 TO 12:00)
     Route: 041
     Dates: start: 20171113, end: 20171113
  64. VINCRISTINE [Suspect]
     Active Substance: VINCRISTINE
     Dosage: 2 MG, UNK
     Route: 042
     Dates: start: 20171102, end: 20171102
  65. PREDNISONE. [Suspect]
     Active Substance: PREDNISONE
     Dosage: 400 MG, UNK
     Route: 048
     Dates: start: 20171113, end: 20171116
  66. PREDNISOLUT [Concomitant]
     Active Substance: PREDNISOLONE
     Dosage: 100 MG, UNK
     Route: 042
     Dates: start: 20171127, end: 20171127
  67. MESNA. [Concomitant]
     Active Substance: MESNA
     Dosage: 2800 MG, UNK
     Route: 042
     Dates: start: 20171113, end: 20171113
  68. KEVATRIL [Concomitant]
     Active Substance: GRANISETRON HYDROCHLORIDE
     Dosage: 1 MG, UNK
     Route: 042
     Dates: start: 20171113, end: 20171113
  69. KEVATRIL [Concomitant]
     Active Substance: GRANISETRON HYDROCHLORIDE
     Dosage: 2 MG, UNK
     Route: 042
     Dates: start: 20171128, end: 20171128
  70. AMPHO?MORONAL [Concomitant]
     Active Substance: AMPHOTERICIN B
     Dosage: UNK, BID (2X1) (2)
     Route: 048
     Dates: start: 20180108, end: 20180114
  71. TAVEGIL [Concomitant]
     Active Substance: CLEMASTINE FUMARATE
     Dosage: UNK ()
     Route: 042
     Dates: start: 20180219, end: 20180219
  72. RIXIMYO [Suspect]
     Active Substance: RITUXIMAB
     Dosage: 700 MG, UNK (INFUSION RATE 2.08 ML/MIN FROM 07:30 TO 11:30)
     Route: 041
     Dates: start: 20180129, end: 20180129
  73. VINCRISTINE [Suspect]
     Active Substance: VINCRISTINE
     Dosage: 2 MG, UNK (INFUSION RATE 2 ML/MIN FROM 07:30 TO 07:35)
     Route: 041
     Dates: start: 20180130, end: 20180130
  74. DOXORUBICIN [Suspect]
     Active Substance: DOXORUBICIN
     Dosage: 92 MG, UNK (INFUSION RATE 8.33 ML/MIN FROM 11:35 TO 12:05)
     Route: 041
     Dates: start: 20171113, end: 20171113
  75. PREDNISOLUT [Concomitant]
     Active Substance: PREDNISOLONE
     Dosage: 100 MG, UNK
     Route: 042
     Dates: start: 20171109, end: 20171109
  76. MESNA. [Concomitant]
     Active Substance: MESNA
     Dosage: 2800 UNK, UNK
     Route: 042
     Dates: start: 20171128, end: 20171128
  77. KEVATRIL [Concomitant]
     Active Substance: GRANISETRON HYDROCHLORIDE
     Dosage: 2 MG, UNK
     Route: 042
     Dates: start: 20171220, end: 20171220
  78. KEVATRIL [Concomitant]
     Active Substance: GRANISETRON HYDROCHLORIDE
     Dosage: 2 MG, UNK
     Route: 042
     Dates: start: 20180220, end: 20180220
  79. AMPHO?MORONAL [Concomitant]
     Active Substance: AMPHOTERICIN B
     Dosage: UNK UNK, BID (2)
     Route: 048
     Dates: start: 20171218, end: 20171224
  80. TAGAMET [Concomitant]
     Active Substance: CIMETIDINE
     Indication: PROPHYLAXIS
     Dosage: UNK ()
     Route: 048
     Dates: start: 20171127, end: 20171127
  81. PARACETAMOL [Concomitant]
     Active Substance: ACETAMINOPHEN
     Indication: PROPHYLAXIS
     Dosage: 1 G, UNK
     Route: 048
     Dates: start: 20171109, end: 20171109
  82. NEULASTA [Concomitant]
     Active Substance: PEGFILGRASTIM
     Dosage: 6 MG, UNK
     Route: 058
     Dates: start: 20180222, end: 20180222
  83. RIXIMYO [Suspect]
     Active Substance: RITUXIMAB
     Dosage: 700 MG, UNK (INFUSION RATE 2.08 ML/MIN FROM 07:30 TO 11:30)
     Route: 042
     Dates: start: 20171127, end: 20171127
  84. VINCRISTINE [Suspect]
     Active Substance: VINCRISTINE
     Indication: DIFFUSE LARGE B-CELL LYMPHOMA
     Dosage: 2 MG, UNK (INFUSION RATE 2 ML/MIN FROM 07:30 TO 07:35)
     Route: 041
     Dates: start: 20171128, end: 20171128
  85. PREDNISOLUT [Concomitant]
     Active Substance: PREDNISOLONE
     Dosage: 100 MG, UNK
     Route: 042
     Dates: start: 20171218, end: 20171218
  86. PREDNISOLUT [Concomitant]
     Active Substance: PREDNISOLONE
     Dosage: 100 MG, UNK
     Route: 042
     Dates: start: 20180219, end: 20180219
  87. AMPHO?MORONAL [Concomitant]
     Active Substance: AMPHOTERICIN B
     Dosage: UNK ()
     Route: 048
     Dates: start: 20180129, end: 20180204
  88. TAVEGIL [Concomitant]
     Active Substance: CLEMASTINE FUMARATE
     Indication: PROPHYLAXIS
     Dosage: UNK ()
     Route: 042
     Dates: start: 20171127, end: 20171127
  89. UROMITEXAN [Concomitant]
     Active Substance: MESNA
     Dosage: 400 MG, UNK
     Route: 048
     Dates: start: 20180130, end: 20180130
  90. UROMITEXAN [Concomitant]
     Active Substance: MESNA
     Dosage: 400 MG, UNK
     Route: 048
     Dates: start: 20180220, end: 20180220

REACTIONS (13)
  - Decreased appetite [Unknown]
  - Fatigue [Unknown]
  - Hypoaesthesia oral [Unknown]
  - Haemoglobin decreased [Unknown]
  - Red blood cell count decreased [Unknown]
  - Thalamic infarction [Recovered/Resolved]
  - Depressed mood [Unknown]
  - Hypoaesthesia [Unknown]
  - Tension [Unknown]
  - Gynaecomastia [Not Recovered/Not Resolved]
  - Gait disturbance [Unknown]
  - Fibrin D dimer increased [Not Recovered/Not Resolved]
  - Anxiety [Unknown]

NARRATIVE: CASE EVENT DATE: 20171109
